FAERS Safety Report 6958788-1 (Version None)
Quarter: 2010Q3

REPORT INFORMATION
  Report Type: 
  Country: None (occurrence: None)
  Receive Date: 20100831
  Receipt Date: 20100819
  Transmission Date: 20110219
  Serious: Yes (Other)
  Sender: FDA-Public Use
  Company Number: PHHY2010FR54981

PATIENT
  Age: 21 Year
  Sex: Male
  Weight: 65 kg

DRUGS (3)
  1. EXJADE [Suspect]
     Indication: IRON OVERLOAD
     Dosage: 1500 MG/DAY
     Dates: start: 20100813
  2. EXJADE [Suspect]
     Indication: HAEMOCHROMATOSIS
  3. TOPIRAMATE [Suspect]
     Indication: EPILEPSY
     Dosage: 100 MG, TID FOR 3 YEARS

REACTIONS (3)
  - CONVULSION [None]
  - DRUG INTERACTION [None]
  - INSOMNIA [None]
